FAERS Safety Report 6201359-5 (Version None)
Quarter: 2009Q2

REPORT INFORMATION
  Report Type: 
  Country: None (occurrence: None)
  Receive Date: 20090526
  Receipt Date: 20090212
  Transmission Date: 20091009
  Serious: No
  Sender: FDA-Public Use
  Company Number: US-BAYER-200913350NA

PATIENT
  Age: 19 Year
  Sex: Female
  Weight: 57 kg

DRUGS (3)
  1. MIRENA [Suspect]
     Dosage: CONTINUOUS
     Route: 015
     Dates: start: 20080601
  2. MULTI-VITAMINS [Concomitant]
  3. IRON [Concomitant]

REACTIONS (6)
  - ABDOMINAL PAIN UPPER [None]
  - BACK PAIN [None]
  - DIZZINESS [None]
  - HEADACHE [None]
  - MOOD ALTERED [None]
  - OVARIAN CYST [None]
